FAERS Safety Report 4661753-0 (Version None)
Quarter: 2005Q2

REPORT INFORMATION
  Report Type: 
  Country: None (occurrence: None)
  Receive Date: 20050513
  Receipt Date: 20050427
  Transmission Date: 20051028
  Serious: Yes (Other)
  Sender: FDA-Public Use
  Company Number: PL-ROCHE-404262

PATIENT
  Age: 41 Year
  Sex: Male

DRUGS (1)
  1. CELLCEPT [Suspect]
     Route: 048

REACTIONS (4)
  - ERYTHEMA [None]
  - FACE OEDEMA [None]
  - SKIN DISORDER [None]
  - SKIN EXFOLIATION [None]
